FAERS Safety Report 6619226-1 (Version None)
Quarter: 2010Q1

REPORT INFORMATION
  Report Type: 
  Country: None (occurrence: None)
  Receive Date: 20100302
  Receipt Date: 20091112
  Transmission Date: 20100710
  Serious: Yes (Other)
  Sender: FDA-Public Use
  Company Number: US-1169995

PATIENT
  Age: 61 Year
  Sex: Female

DRUGS (5)
  1. TOBRADEX [Suspect]
     Indication: POSTOPERATIVE CARE
     Dosage: TOPICAL QID OPHTHALMIC
     Route: 047
     Dates: start: 20090601
  2. ACIPHEX [Concomitant]
  3. RYNATAN [Concomitant]
  4. SINGULAIR [Concomitant]
  5. MICARDIS [Concomitant]

REACTIONS (7)
  - BLEPHAROPLASTY [None]
  - BLISTER [None]
  - CONTUSION [None]
  - HEADACHE [None]
  - HYPERSENSITIVITY [None]
  - IMPAIRED DRIVING ABILITY [None]
  - VISION BLURRED [None]
